FAERS Safety Report 8560047 (Version 3)
Quarter: 2012Q4

REPORT INFORMATION
  Report Type: 
  Country: JP (occurrence: JP)
  Receive Date: 20120514
  Receipt Date: 20121107
  Transmission Date: 20130627
  Serious: Yes (Hospitalization)
  Sender: FDA-Public Use
  Company Number: PHHY2012JP040135

PATIENT
  Age: 69 Year
  Sex: Female

DRUGS (2)
  1. ZOMETA [Suspect]
     Indication: BONE LESION
     Route: 041
  2. HERCEPTIN [Concomitant]
     Route: 041

REACTIONS (2)
  - Femoral neck fracture [Recovering/Resolving]
  - Pain [Unknown]
